FAERS Safety Report 5996678-1 (Version None)
Quarter: 2008Q4

REPORT INFORMATION
  Report Type: 
  Country: None (occurrence: None)
  Receive Date: 20081212
  Receipt Date: 20081021
  Transmission Date: 20090506
  Serious: No
  Sender: FDA-Public Use
  Company Number: US-ABBOTT-08P-163-0483207-00

PATIENT
  Sex: Female
  Weight: 57.658 kg

DRUGS (5)
  1. HUMIRA [Suspect]
     Indication: ANKYLOSING SPONDYLITIS
     Route: 058
     Dates: start: 20080701, end: 20081001
  2. HUMIRA [Suspect]
     Route: 058
     Dates: start: 20081021
  3. BUPROPION HCL [Concomitant]
     Indication: FIBROMYALGIA
     Route: 048
  4. CARISOPRODOL [Concomitant]
     Indication: FIBROMYALGIA
     Route: 048
  5. CELECOXIB [Concomitant]
     Indication: FIBROMYALGIA
     Route: 048

REACTIONS (8)
  - ARTHRALGIA [None]
  - DIARRHOEA [None]
  - DRUG DELIVERY SYSTEM MALFUNCTION [None]
  - FLATULENCE [None]
  - GASTRIC DISORDER [None]
  - MUSCULOSKELETAL CHEST PAIN [None]
  - NAUSEA [None]
  - NECK PAIN [None]
